FAERS Safety Report 6732839-1 (Version None)
Quarter: 2010Q2

REPORT INFORMATION
  Report Type: 
  Country: None (occurrence: None)
  Receive Date: 20100519
  Receipt Date: 20100506
  Transmission Date: 20101027
  Serious: Yes (Hospitalization)
  Sender: FDA-Public Use
  Company Number: IT-ELI_LILLY_AND_COMPANY-IT201005001227

PATIENT
  Sex: Female

DRUGS (4)
  1. CYMBALTA [Suspect]
     Indication: DIABETIC NEUROPATHY
     Dosage: 60 MG, DAILY (1/D)
     Route: 048
     Dates: start: 20091027, end: 20100425
  2. APIDRA [Concomitant]
     Dosage: UNK, UNKNOWN
     Route: 058
  3. LANTUS [Concomitant]
     Dosage: UNK, UNKNOWN
     Route: 058
  4. ASPIRIN [Concomitant]
     Dosage: 100 MG, UNKNOWN
     Route: 065

REACTIONS (5)
  - DIARRHOEA [None]
  - HALLUCINATION [None]
  - METABOLIC DISORDER [None]
  - TREMOR [None]
  - VOMITING [None]
